FAERS Safety Report 10669608 (Version 1)
Quarter: 2014Q4

REPORT INFORMATION
  Report Type: Spontaneous
  Country: FR (occurrence: FR)
  Receive Date: 20141222
  Receipt Date: 20141222
  Transmission Date: 20150529
  Serious: Yes (Other)
  Sender: FDA-Public Use
  Company Number: FR-009507513-1412FRA008432

PATIENT
  Age: 53 Year
  Sex: Female

DRUGS (10)
  1. AMLOR [Suspect]
     Active Substance: AMLODIPINE BESYLATE
     Dosage: 5 MG TWICE IN 24 HOURS
     Route: 048
     Dates: end: 20141111
  2. ZYLORIC [Suspect]
     Active Substance: ALLOPURINOL
     Dosage: 300 MG TWICE IN 24 HOURS
     Route: 048
     Dates: end: 20141106
  3. NOXAFIL [Suspect]
     Active Substance: POSACONAZOLE
     Dosage: 200 MG 3 TIMES IN 24 HOURS
     Route: 048
     Dates: end: 20141111
  4. FUNGIZONE [Suspect]
     Active Substance: AMPHOTERICIN B
     Route: 002
  5. PRIMPERAN [Suspect]
     Active Substance: METOCLOPRAMIDE HYDROCHLORIDE
     Dosage: 30 MG, UNK
     Route: 042
     Dates: start: 20141105, end: 20141106
  6. ZELITREX [Suspect]
     Active Substance: VALACYCLOVIR HYDROCHLORIDE
     Dosage: 500 MG IN 24 HOURS
     Route: 048
     Dates: end: 20141111
  7. INEXIUM (ESOMEPRAZOLE SODIUM) [Suspect]
     Active Substance: ESOMEPRAZOLE
     Dosage: 20 MG IN 24 HOURS
     Route: 048
     Dates: end: 20141111
  8. PENTACARINAT [Suspect]
     Active Substance: PENTAMIDINE ISETHIONATE
     Dosage: UNK
     Route: 055
     Dates: end: 20141105
  9. LEXOMIL [Suspect]
     Active Substance: BROMAZEPAM
     Dosage: 6 MG IN 24 HOURS
     Route: 048
     Dates: end: 20141106
  10. TOPALGIC (TRAMADOL HYDROCHLORIDE) [Suspect]
     Active Substance: TRAMADOL
     Dosage: 50 MG 4 TIMES IN 24 HOURS
     Route: 042
     Dates: start: 20141105, end: 20141106

REACTIONS (1)
  - Toxic skin eruption [Recovering/Resolving]

NARRATIVE: CASE EVENT DATE: 20141106
